FAERS Safety Report 8036385-7 (Version None)
Quarter: 2012Q1

REPORT INFORMATION
  Report Type: 
  Country: None (occurrence: None)
  Receive Date: 20120106
  Receipt Date: 20111223
  Transmission Date: 20120608
  Serious: Yes (Death, Other)
  Sender: FDA-Public Use
  Company Number: 2011MA017330

PATIENT
  Age: 37 Year
  Sex: Female

DRUGS (1)
  1. GEMCITABINE HYDROCHLORIDE [Suspect]
     Indication: T-CELL LYMPHOMA

REACTIONS (6)
  - SUBCUTANEOUS NODULE [None]
  - HISTIOCYTOSIS HAEMATOPHAGIC [None]
  - LYMPHADENOPATHY [None]
  - ERYTHEMA [None]
  - PYREXIA [None]
  - EPSTEIN-BARR VIRUS TEST POSITIVE [None]
